FAERS Safety Report 16935071 (Version 1)
Quarter: 2019Q4

REPORT INFORMATION
  Report Type: Spontaneous
  Country: US (occurrence: US)
  Receive Date: 20191018
  Receipt Date: 20191018
  Transmission Date: 20200122
  Serious: No
  Sender: FDA-Public Use
  Company Number: US-PFIZER INC-2019449041

PATIENT
  Age: 33 Year
  Sex: Female

DRUGS (1)
  1. NALOXONE HCL [Suspect]
     Active Substance: NALOXONE HYDROCHLORIDE
     Indication: ANAESTHESIA REVERSAL
     Dosage: UNK
     Route: 042
     Dates: start: 20190816

REACTIONS (4)
  - Acidosis [Unknown]
  - Electrocardiogram change [Unknown]
  - Drug ineffective [Unknown]
  - Dyspnoea [Unknown]

NARRATIVE: CASE EVENT DATE: 2019
